FAERS Safety Report 6821192-0 (Version None)
Quarter: 2010Q3

REPORT INFORMATION
  Report Type: 
  Country: None (occurrence: None)
  Receive Date: 20100707
  Receipt Date: 20100625
  Transmission Date: 20110219
  Serious: Yes (Other)
  Sender: FDA-Public Use
  Company Number: FR-AMGEN-QUU417217

PATIENT
  Sex: Female
  Weight: 65 kg

DRUGS (8)
  1. ENBREL [Suspect]
     Indication: PSORIATIC ARTHROPATHY
     Route: 058
     Dates: start: 20091008, end: 20091008
  2. ENBREL [Suspect]
     Indication: PSORIASIS
  3. HUMIRA [Suspect]
     Indication: PSORIATIC ARTHROPATHY
     Dosage: UNKNOWN
     Dates: start: 20090630, end: 20090928
  4. HUMIRA [Suspect]
     Indication: PSORIASIS
  5. CORTANCYL [Concomitant]
     Dosage: 20 MG TOTAL DAILY
     Route: 048
     Dates: start: 20090828
  6. VOLTAREN [Concomitant]
     Dosage: 150 MG TOTAL DAILY
     Route: 048
     Dates: start: 20090816
  7. CHRONO-INDOCID [Concomitant]
     Dosage: 2 DOSES TOTAL DAILY
     Route: 048
     Dates: start: 20090616
  8. NOVATREX [Concomitant]
     Dosage: 10 MG TOTAL WEEKLY
     Route: 048
     Dates: start: 20090123, end: 20100501

REACTIONS (2)
  - DEMYELINATION [None]
  - POLYNEUROPATHY [None]
